FAERS Safety Report 7594274-6 (Version None)
Quarter: 2011Q3

REPORT INFORMATION
  Report Type: 
  Country: None (occurrence: None)
  Receive Date: 20110706
  Receipt Date: 20110621
  Transmission Date: 20111222
  Serious: Yes (Life-Threatening, Hospitalization, Other)
  Sender: FDA-Public Use
  Company Number: ZA-ASTRAZENECA-2011SE39903

PATIENT
  Age: 0 Week
  Sex: Male

DRUGS (5)
  1. SEROQUEL XR [Suspect]
     Indication: DEPRESSION
     Route: 064
     Dates: start: 20101117, end: 20110615
  2. SEROQUEL XR [Suspect]
     Indication: BIPOLAR DISORDER
     Route: 064
     Dates: start: 20101117, end: 20110615
  3. SEROQUEL XR [Suspect]
     Indication: IRRITABILITY
     Route: 064
     Dates: start: 20101117, end: 20110615
  4. ZOLOFT [Concomitant]
     Indication: BIPOLAR DISORDER
     Route: 048
  5. ZOLOFT [Concomitant]
     Route: 048
     Dates: start: 20101117

REACTIONS (2)
  - PREMATURE BABY [None]
  - MECHANICAL VENTILATION [None]
